FAERS Safety Report 5771115-0 (Version None)
Quarter: 2008Q2

REPORT INFORMATION
  Report Type: 
  Country: None (occurrence: None)
  Receive Date: 20080613
  Receipt Date: 20080529
  Transmission Date: 20081010
  Serious: No
  Sender: FDA-Public Use
  Company Number: US-ABBOTT-08P-163-0453883-00

PATIENT
  Sex: Male
  Weight: 72.64 kg

DRUGS (1)
  1. HUMIRA [Suspect]
     Indication: RHEUMATOID ARTHRITIS
     Route: 058
     Dates: start: 20050201

REACTIONS (4)
  - DRUG INEFFECTIVE [None]
  - NODULE [None]
  - PAIN [None]
  - RHEUMATOID ARTHRITIS [None]
